FAERS Safety Report 8240047-0 (Version None)
Quarter: 2012Q1

REPORT INFORMATION
  Report Type: 
  Country: None (occurrence: None)
  Receive Date: 20120328
  Receipt Date: 20120322
  Transmission Date: 20120608
  Serious: Yes (Other)
  Sender: FDA-Public Use
  Company Number: DE-B.I. PHARMACEUTICALS,INC./RIDGEFIELD-2012-DE-00193DE

PATIENT
  Sex: Female
  Weight: 60 kg

DRUGS (4)
  1. PRADAXA [Suspect]
     Indication: CARDIAC PACEMAKER INSERTION
  2. PRADAXA [Suspect]
     Indication: CONGESTIVE CARDIOMYOPATHY
     Dosage: 110 MG
     Dates: start: 20111101, end: 20111129
  3. PRADAXA [Suspect]
     Indication: ARRHYTHMIA
  4. PRADAXA [Suspect]
     Indication: ATRIAL FIBRILLATION

REACTIONS (2)
  - CREATININE RENAL CLEARANCE DECREASED [None]
  - RENAL IMPAIRMENT [None]
